FAERS Safety Report 8913738 (Version 3)
Quarter: 2013Q1

REPORT INFORMATION
  Report Type: Spontaneous
  Country: FR (occurrence: FR)
  Receive Date: 20121119
  Receipt Date: 20130326
  Transmission Date: 20140127
  Serious: Yes (Other)
  Sender: FDA-Public Use
  Company Number: FR-JNJFOC-20121107284

PATIENT
  Age: 61 None
  Sex: Male

DRUGS (6)
  1. XARELTO [Suspect]
     Indication: PRODUCT USED FOR UNKNOWN INDICATION
     Route: 048
     Dates: start: 20120521, end: 20120620
  2. GLUCOPHAGE [Concomitant]
     Route: 065
  3. ALDACTAZINE [Concomitant]
     Route: 065
     Dates: start: 20100521, end: 20120620
  4. FLUDEX [Concomitant]
     Route: 048
     Dates: start: 20100520, end: 20120620
  5. CARDENSIEL [Concomitant]
     Route: 065
  6. TWYNSTA [Concomitant]
     Route: 065

REACTIONS (7)
  - Renal failure acute [Recovered/Resolved]
  - Hypotension [Recovered/Resolved]
  - Asthenia [Recovered/Resolved]
  - Fatigue [Recovered/Resolved]
  - Weight decreased [Recovered/Resolved]
  - Hyponatraemia [Recovered/Resolved]
  - Blood pressure abnormal [Recovered/Resolved]
